FAERS Safety Report 22658468 (Version 1)
Quarter: 2023Q2

REPORT INFORMATION
  Report Type: Other
  Country: CA (occurrence: CA)
  Receive Date: 20230630
  Receipt Date: 20230630
  Transmission Date: 20230722
  Serious: Yes (Hospitalization, Other)
  Sender: FDA-Public Use
  Company Number: CA-PFIZER INC-202300232910

PATIENT
  Age: 28 Year
  Sex: Female

DRUGS (13)
  1. CEFTRIAXONE SODIUM [Suspect]
     Active Substance: CEFTRIAXONE SODIUM
     Indication: Escherichia infection
     Dosage: 2 G, 1X/DAY (1 EVERY 24 HOURS)
     Route: 065
  2. CEFTRIAXONE SODIUM [Suspect]
     Active Substance: CEFTRIAXONE SODIUM
     Indication: Amniotic cavity infection
  3. OXYTOCIN [Suspect]
     Active Substance: OXYTOCIN
     Indication: Labour augmentation
     Dosage: UNK
     Route: 065
  4. ERYTHROMYCIN [Suspect]
     Active Substance: ERYTHROMYCIN
     Indication: Preterm premature rupture of membranes
     Dosage: 333 MG, 3X/DAY (1 EVERY 8 HOURS)
     Route: 065
  5. AMOXICILLIN [Suspect]
     Active Substance: AMOXICILLIN
     Indication: Preterm premature rupture of membranes
     Dosage: 250.0 MG, 1 EVERY 8 HOURS
     Route: 048
  6. AMPICILLIN [Suspect]
     Active Substance: AMPICILLIN
     Indication: Preterm premature rupture of membranes
     Dosage: 2 G, 4X/DAY (1 EVERY 6 HOURS)
     Route: 042
  7. AMPICILLIN [Suspect]
     Active Substance: AMPICILLIN
     Dosage: 2 G, 4X/DAY (1 EVERY 6 HOURS)
     Route: 065
  8. BETAMETHASONE [Suspect]
     Active Substance: BETAMETHASONE
     Indication: Maternal therapy to enhance foetal lung maturity
     Dosage: 12 MG, 1X/DAY (1 EVERY 24 HOURS)
     Route: 030
  9. ERYTHROMYCIN [Suspect]
     Active Substance: ERYTHROMYCIN
     Indication: Preterm premature rupture of membranes
     Dosage: 500 MG, 4X/DAY (1 EVERY 6 HOURS)
     Route: 042
  10. PIPERACILLIN SODIUM\TAZOBACTAM SODIUM [Suspect]
     Active Substance: PIPERACILLIN SODIUM\TAZOBACTAM SODIUM
     Indication: Escherichia infection
     Dosage: UNK
     Route: 065
  11. PIPERACILLIN SODIUM\TAZOBACTAM SODIUM [Suspect]
     Active Substance: PIPERACILLIN SODIUM\TAZOBACTAM SODIUM
     Indication: Amniotic cavity infection
  12. GENTAMICIN [Concomitant]
     Active Substance: GENTAMICIN
     Indication: Escherichia infection
     Dosage: 5 MG/KG, 1X/DAY (1 EVERY 24 HOURS)
     Route: 065
  13. GENTAMICIN [Concomitant]
     Active Substance: GENTAMICIN
     Indication: Amniotic cavity infection

REACTIONS (2)
  - Drug ineffective [Unknown]
  - Foetal death [Unknown]
